FAERS Safety Report 4921257-4 (Version None)
Quarter: 2006Q1

REPORT INFORMATION
  Report Type: 
  Country: None (occurrence: None)
  Receive Date: 20060224
  Receipt Date: 20060215
  Transmission Date: 20060701
  Serious: Yes (Other)
  Sender: FDA-Public Use
  Company Number: US-KINGPHARMUSA00001-K200600221

PATIENT
  Age: 73 Year
  Sex: Male

DRUGS (10)
  1. ALTACE [Suspect]
     Dosage: 1.25 MG, QD
     Route: 048
  2. KARDEGIC/FRA/ [Suspect]
     Dosage: UNK, QD
     Route: 048
  3. ALDACTONE [Suspect]
     Dosage: 2.5 U, QD
     Route: 048
  4. MODAMIDE [Suspect]
     Dosage: 10 MG, QD
     Route: 048
  5. GLEEVEC [Suspect]
     Indication: CHRONIC MYELOID LEUKAEMIA
     Dosage: 400 MG, QD
     Route: 048
     Dates: start: 20040411
  6. LOGIMAX [Suspect]
     Dosage: 5 MG, UNK
     Route: 048
  7. URION ^BYK GULDEN^ [Concomitant]
     Route: 048
  8. MAG 2 [Concomitant]
  9. NUCTALON [Concomitant]
     Dosage: UNK, UNK
     Route: 048
  10. DIFFU K [Concomitant]
     Dosage: UNK, UNK
     Route: 048

REACTIONS (3)
  - LICHENOID KERATOSIS [None]
  - MYCOSIS FUNGOIDES [None]
  - PRURIGO [None]
